FAERS Safety Report 7497004-1 (Version None)
Quarter: 2011Q2

REPORT INFORMATION
  Report Type: 
  Country: None (occurrence: None)
  Receive Date: 20110523
  Receipt Date: 20110509
  Transmission Date: 20111010
  Serious: Yes (Other)
  Sender: FDA-Public Use
  Company Number: DE-JNJFOC-20110503857

PATIENT
  Sex: Female
  Weight: 65 kg

DRUGS (3)
  1. PREDNISOLONE [Concomitant]
  2. REMICADE [Suspect]
     Indication: RHEUMATOID ARTHRITIS
     Route: 042
     Dates: start: 20000101
  3. METHOTREXATE [Concomitant]

REACTIONS (1)
  - ADVERSE EVENT [None]
